FAERS Safety Report 5751409-5 (Version None)
Quarter: 2008Q2

REPORT INFORMATION
  Report Type: 
  Country: None (occurrence: None)
  Receive Date: 20080523
  Receipt Date: 20080509
  Transmission Date: 20081010
  Serious: Yes (Other)
  Sender: FDA-Public Use
  Company Number: CC08-340

PATIENT
  Age: 49 Year
  Sex: Male

DRUGS (27)
  1. ALBUTEROL [Suspect]
     Indication: ASTHMA
     Dosage: 2 ACTUATIONS AS NEEDED
     Dates: start: 20080106, end: 20080114
  2. ALBUTEROL [Suspect]
     Indication: ASTHMA
     Dosage: 2 ACTUATIONS AS NEEDED
     Dates: start: 20080114, end: 20080123
  3. ALBUTEROL [Suspect]
     Indication: ASTHMA
     Dosage: 2 ACTUATIONS AS NEEDED
     Dates: start: 20080123, end: 20080201
  4. ALBUTEROL [Suspect]
     Indication: ASTHMA
     Dosage: 2 ACTUATIONS AS NEEDED
     Dates: start: 20080201, end: 20080210
  5. ALBUTEROL [Suspect]
     Indication: ASTHMA
     Dosage: 2 ACTUATIONS AS NEEDED
     Dates: start: 20080210, end: 20080223
  6. ALBUTEROL [Suspect]
     Indication: ASTHMA
     Dosage: 2 ACTUATIONS AS NEEDED
     Dates: start: 20080223, end: 20080304
  7. ALBUTEROL [Suspect]
     Indication: ASTHMA
     Dosage: 2 ACTUATIONS AS NEEDED
     Dates: start: 20080304, end: 20080316
  8. ALBUTEROL [Suspect]
     Indication: ASTHMA
     Dosage: 2 ACTUATIONS AS NEEDED
     Dates: start: 20080316, end: 20080325
  9. ALBUTEROL [Suspect]
     Indication: ASTHMA
     Dosage: 2 ACTUATIONS AS NEEDED
     Dates: start: 20080325, end: 20080405
  10. ALBUTEROL [Suspect]
     Indication: ASTHMA
     Dosage: 2 ACTUATIONS AS NEEDED
     Dates: start: 20080405, end: 20080419
  11. ALBUTEROL [Suspect]
     Indication: ASTHMA
     Dosage: 2 ACTUATIONS AS NEEDED
     Dates: start: 20080419, end: 20080428
  12. ALBUTEROL [Suspect]
     Indication: ASTHMA
     Dosage: 2 ACTUATIONS AS NEEDED
     Dates: start: 20080428, end: 20080508
  13. ALBUTEROL [Suspect]
     Indication: ASTHMA
     Dosage: 2 ACTUATIONS AS NEEDED
     Dates: start: 20000101, end: 20080509
  14. ALBUTEROL [Suspect]
     Indication: ASTHMA
     Dosage: 2 ACTUATIONS AS NEEDED
     Dates: start: 20070904
  15. ALBUTEROL [Suspect]
  16. ALBUTEROL [Suspect]
  17. ALBUTEROL [Suspect]
  18. ALBUTEROL [Suspect]
  19. ALBUTEROL [Suspect]
  20. ALBUTEROL [Suspect]
  21. ALBUTEROL [Suspect]
  22. ALBUTEROL [Suspect]
  23. ALBUTEROL [Suspect]
  24. ALBUTEROL [Suspect]
  25. ALBUTEROL [Suspect]
  26. ALBUTEROL [Suspect]
  27. PREDNISONE TAB [Concomitant]

REACTIONS (4)
  - ANXIETY [None]
  - DRUG EFFECT DECREASED [None]
  - PHARMACEUTICAL PRODUCT COMPLAINT [None]
  - STRESS [None]
